FAERS Safety Report 10028833 (Version 4)
Quarter: 2014Q3

REPORT INFORMATION
  Report Type: Report from Study
  Country: US (occurrence: US)
  Receive Date: 20140321
  Receipt Date: 20140819
  Transmission Date: 20150326
  Serious: Yes (Hospitalization, Other)
  Sender: FDA-Public Use
  Company Number: US-PFIZER INC-2014041759

PATIENT
  Age: 4 Year
  Sex: Male
  Weight: 17.8 kg

DRUGS (19)
  1. BLINDED THERAPY [Suspect]
     Active Substance: UNSPECIFIED INGREDIENT
     Indication: PNEUMONIA STREPTOCOCCAL
     Dosage: UNK
     Dates: start: 20131210, end: 20131221
  2. AMOXICILLIN. [Concomitant]
     Active Substance: AMOXICILLIN
     Dosage: 1620 MG (540 MG, 3 IN 1 D)
     Route: 048
     Dates: start: 20140111, end: 20140201
  3. OXYCODONE [Concomitant]
     Active Substance: OXYCODONE
     Indication: PAIN
     Dosage: 0.5 ML, EVERY 6 HOURS AS NEEDED
     Route: 048
     Dates: start: 20131222
  4. CLINDAMYCIN HCL [Suspect]
     Active Substance: CLINDAMYCIN HYDROCHLORIDE
     Indication: INFECTION
     Dosage: 720 MG, (240 MG, 1 IN 8 HR)
     Route: 042
     Dates: start: 20131209, end: 20131210
  5. AUGMENTIN [Suspect]
     Active Substance: AMOXICILLIN\CLAVULANATE POTASSIUM
     Indication: ANTIBIOTIC PROPHYLAXIS
     Dosage: 80 MG/KG/DAY (1 IN 12 HR)
     Route: 048
     Dates: start: 20131224, end: 20131230
  6. MIRALAX [Concomitant]
     Active Substance: POLYETHYLENE GLYCOL 3350
     Indication: CONSTIPATION
     Dosage: 17 G (17 GM,1 IN 1 D)
     Route: 048
     Dates: start: 20131224
  7. AUGMENTIN [Suspect]
     Active Substance: AMOXICILLIN\CLAVULANATE POTASSIUM
     Indication: PNEUMOCOCCAL BACTERAEMIA
     Dosage: 90 MG/KG/DAY (1 IN 12 HR)
     Route: 048
     Dates: start: 20131221, end: 20131223
  8. MIRALAX [Concomitant]
     Active Substance: POLYETHYLENE GLYCOL 3350
     Dosage: 17 G (17 GM,1 IN 1 D)
     Route: 048
     Dates: start: 20140110
  9. AMOXICILLIN. [Concomitant]
     Active Substance: AMOXICILLIN
     Indication: INFECTION
     Dosage: UNK
     Route: 048
     Dates: start: 20131230
  10. CLINDAMYCIN HCL [Suspect]
     Active Substance: CLINDAMYCIN HYDROCHLORIDE
     Indication: PNEUMOCOCCAL BACTERAEMIA
     Dosage: 40 MG/KG/DAY (1 IN 8 HR)
     Route: 042
     Dates: start: 20131209, end: 20131210
  11. AUGMENTIN [Suspect]
     Active Substance: AMOXICILLIN\CLAVULANATE POTASSIUM
     Dosage: 12.5 ML, (6:25 ML, 2 IN D)
     Route: 048
     Dates: start: 20131223, end: 20131230
  12. ZOFRAN [Concomitant]
     Active Substance: ONDANSETRON HYDROCHLORIDE
     Indication: NAUSEA
     Dosage: 2 MG,  Q6H AS NEEDED
     Route: 048
     Dates: start: 20131224
  13. ZOFRAN [Concomitant]
     Active Substance: ONDANSETRON HYDROCHLORIDE
     Indication: VOMITING
     Dosage: 2 MG, Q6H PRN
     Route: 048
     Dates: start: 20140110
  14. OXYCODONE [Concomitant]
     Active Substance: OXYCODONE
     Dosage: 5 MG/5ML, Q6H PRN
     Route: 048
     Dates: start: 20140110
  15. AZITHROMYCIN [Suspect]
     Active Substance: AZITHROMYCIN ANHYDROUS
     Indication: PNEUMOCOCCAL BACTERAEMIA
     Dosage: 180 MG, UNK
     Dates: start: 20131209, end: 20131209
  16. CLINDAMYCIN HCL [Suspect]
     Active Substance: CLINDAMYCIN HYDROCHLORIDE
     Indication: INFECTION
  17. AUGMENTIN [Suspect]
     Active Substance: AMOXICILLIN\CLAVULANATE POTASSIUM
     Indication: ANTIBIOTIC THERAPY
     Dosage: 90 MG/KG/DAY (1 IN 12 HR)
     Route: 048
     Dates: start: 20131230, end: 20140106
  18. CEFTRIAXONE. [Concomitant]
     Active Substance: CEFTRIAXONE
     Indication: INFECTION
     Dosage: 450 MG, UNK
     Route: 042
     Dates: start: 20131209, end: 20131209
  19. AZITHROMYCIN [Suspect]
     Active Substance: AZITHROMYCIN ANHYDROUS
     Indication: INFECTION

REACTIONS (1)
  - Pulmonary thrombosis [Recovered/Resolved]

NARRATIVE: CASE EVENT DATE: 20140107
